FAERS Safety Report 7734144-3 (Version None)
Quarter: 2011Q3

REPORT INFORMATION
  Report Type: 
  Country: None (occurrence: None)
  Receive Date: 20110906
  Receipt Date: 20110906
  Transmission Date: 20111222
  Serious: Yes (Hospitalization)
  Sender: FDA-Public Use
  Company Number: None

PATIENT
  Age: 85 Year
  Sex: Male
  Weight: 45.8 kg

DRUGS (1)
  1. ENOXAPARIN [Suspect]
     Dosage: 40 MG EVERY DAY SQ
     Route: 058
     Dates: start: 20110629, end: 20110713

REACTIONS (1)
  - THROMBOCYTOPENIA [None]
